FAERS Safety Report 21840023 (Version 2)
Quarter: 2023Q1

REPORT INFORMATION
  Report Type: Report from Study
  Country: IT (occurrence: None)
  Receive Date: 20230110
  Receipt Date: 20230131
  Transmission Date: 20230418
  Serious: Yes (Hospitalization)
  Sender: FDA-Public Use
  Company Number: IT-ROCHE-3247322

PATIENT
  Age: 41 Year
  Sex: Female
  Weight: 67 kg

DRUGS (12)
  1. PERTUZUMAB\TRASTUZUMAB [Suspect]
     Active Substance: PERTUZUMAB\TRASTUZUMAB
     Indication: Breast cancer
     Dosage: LAST DOSE BEFORE SAE 02/NOV/2022 9 COURSES
     Route: 058
     Dates: start: 20220516, end: 20221102
  2. VANCOMYCIN [Concomitant]
     Active Substance: VANCOMYCIN
     Dates: start: 20221213, end: 20221214
  3. VANCOMYCIN [Concomitant]
     Active Substance: VANCOMYCIN
     Dates: start: 20221213, end: 20221213
  4. LEVOFLOXACIN [Concomitant]
     Active Substance: LEVOFLOXACIN
     Dosage: 14/DEC/2022-16/DEC/2022
     Dates: start: 20221213, end: 20221213
  5. LEVOFLOXACIN [Concomitant]
     Active Substance: LEVOFLOXACIN
     Dates: start: 20221220, end: 20221229
  6. DEXAMETHASONE [Concomitant]
     Active Substance: DEXAMETHASONE
     Dates: start: 20221214, end: 20221214
  7. DEXAMETHASONE [Concomitant]
     Active Substance: DEXAMETHASONE
     Dates: start: 20221214, end: 20221222
  8. PANTOPRAZOLE [Concomitant]
     Active Substance: PANTOPRAZOLE
     Dates: start: 20221214, end: 20221214
  9. OXACILLIN SODIUM [Concomitant]
     Active Substance: OXACILLIN SODIUM
     Dates: start: 20221216, end: 20221226
  10. RIFAMPIN [Concomitant]
     Active Substance: RIFAMPIN
     Dates: start: 20221217, end: 20221218
  11. ACETAMINOPHEN [Concomitant]
     Active Substance: ACETAMINOPHEN
     Dates: start: 20221217, end: 20221228
  12. MEROPENEM [Concomitant]
     Active Substance: MEROPENEM
     Dates: start: 20221229, end: 20230105

REACTIONS (1)
  - Breast discharge [Recovered/Resolved]

NARRATIVE: CASE EVENT DATE: 20221213
